FAERS Safety Report 7550773-4 (Version None)
Quarter: 2011Q2

REPORT INFORMATION
  Report Type: 
  Country: None (occurrence: None)
  Receive Date: 20110616
  Receipt Date: 20110606
  Transmission Date: 20111010
  Serious: No
  Sender: FDA-Public Use
  Company Number: US-JNJFOC-20110408206

PATIENT
  Sex: Male
  Weight: 89.81 kg

DRUGS (6)
  1. DURAGESIC-100 [Suspect]
     Indication: NERVE INJURY
     Dosage: NDC #50458-094-05
     Route: 062
     Dates: start: 20110201
  2. PERCOCET [Concomitant]
     Indication: NERVE INJURY
     Dosage: 5-325MG
     Route: 048
     Dates: start: 20030101
  3. DURAGESIC-100 [Suspect]
     Dosage: NDC #50458-094-05
     Route: 062
     Dates: start: 20110201
  4. DURAGESIC-100 [Suspect]
     Indication: PAIN
     Dosage: NDC #50458-094-05
     Route: 062
     Dates: start: 20110201
  5. DURAGESIC-100 [Suspect]
     Dosage: NDC #50458-094-05
     Route: 062
     Dates: start: 20110201
  6. XANAX [Concomitant]
     Route: 048
     Dates: start: 20030101

REACTIONS (5)
  - DRUG EFFECT DECREASED [None]
  - WRONG TECHNIQUE IN DRUG USAGE PROCESS [None]
  - INCORRECT DRUG ADMINISTRATION DURATION [None]
  - MUSCULOSKELETAL STIFFNESS [None]
  - PRODUCT ADHESION ISSUE [None]
